FAERS Safety Report 5690005-5 (Version None)
Quarter: 2008Q2

REPORT INFORMATION
  Report Type: 
  Country: None (occurrence: None)
  Receive Date: 20080401
  Receipt Date: 20071228
  Transmission Date: 20081010
  Serious: No
  Sender: FDA-Public Use
  Company Number: A0700750A

PATIENT
  Age: 45 Year
  Sex: Female

DRUGS (7)
  1. FLOVENT [Suspect]
     Indication: ASTHMA
     Dosage: 220MCG UNKNOWN
     Route: 055
     Dates: start: 20030101
  2. ADVAIR HFA [Suspect]
     Indication: ASTHMA
     Route: 055
     Dates: start: 20040101
  3. FLONASE [Suspect]
     Indication: POLYP
     Route: 045
  4. PULMICORT [Concomitant]
  5. PRILOSEC [Concomitant]
  6. ALBUTEROL [Concomitant]
  7. MULTIPLE VITAMIN [Concomitant]

REACTIONS (8)
  - DYSPNOEA [None]
  - HYPERSENSITIVITY [None]
  - LUNG DISORDER [None]
  - PAROSMIA [None]
  - POLYP [None]
  - SINUS DISORDER [None]
  - SINUS OPERATION [None]
  - SINUSITIS [None]
